FAERS Safety Report 5280886-1 (Version None)
Quarter: 2007Q1

REPORT INFORMATION
  Report Type: 
  Country: None (occurrence: None)
  Receive Date: 20061229
  Receipt Date: 20060922
  Transmission Date: 20070707
  Serious: Yes (Other)
  Sender: FDA-Public Use
  Company Number: 2006UW14063

PATIENT
  Age: 65 Year
  Sex: Male
  Weight: 122.46 kg

DRUGS (13)
  1. CRESTOR [Suspect]
     Dosage: 10 MG DAILY PO
     Route: 048
     Dates: start: 20060515, end: 20060707
  2. UNIRETIC [Concomitant]
  3. CLARINEX [Concomitant]
  4. NEXIUM ORAL [Concomitant]
  5. NORVASC [Concomitant]
  6. GLYNASE [Concomitant]
  7. AMBIEN [Concomitant]
  8. TESSALON [Concomitant]
  9. QUININE SULFATE [Concomitant]
  10. DONNATAL [Concomitant]
  11. COMPAZINE [Concomitant]
  12. ADVAIR DISKUS 100/50 [Concomitant]
  13. ALBUTEROL [Concomitant]

REACTIONS (1)
  - URINE ODOUR ABNORMAL [None]
